FAERS Safety Report 5869377-4 (Version None)
Quarter: 2008Q3

REPORT INFORMATION
  Report Type: 
  Country: None (occurrence: None)
  Receive Date: 20080903
  Receipt Date: 20080902
  Transmission Date: 20090109
  Serious: Yes (Other)
  Sender: FDA-Public Use
  Company Number: US-BOEHRINGER INGELHEIM GMBH, GERMANY-2008-DE-05191GD

PATIENT
  Age: 5 Year
  Sex: Male
  Weight: 21 kg

DRUGS (5)
  1. CLONIDINE [Suspect]
     Indication: EPIDURAL ANAESTHESIA
     Dosage: 21 ML OF 200 MCG/ML
     Route: 008
  2. BUPIVACAINE/EPINEPHRINE [Concomitant]
     Indication: EPIDURAL ANAESTHESIA
     Dosage: 21 ML OF 0.25% BUPIVACAINE WITH 1:200000 EPINEPHRINE
     Route: 008
  3. MORPHINE [Concomitant]
  4. KETOROLAC TROMETHAMINE [Concomitant]
  5. DOLASETRON [Concomitant]
     Route: 042

REACTIONS (2)
  - ACCIDENTAL OVERDOSE [None]
  - SOMNOLENCE [None]
